FAERS Safety Report 6260882-8 (Version None)
Quarter: 2009Q3

REPORT INFORMATION
  Report Type: 
  Country: None (occurrence: None)
  Receive Date: 20090707
  Receipt Date: 20090626
  Transmission Date: 20100115
  Serious: Yes (Other)
  Sender: FDA-Public Use
  Company Number: 2009AL004313

PATIENT
  Age: 70 Year
  Sex: Male

DRUGS (7)
  1. LEVETIRACETAM ORAL SOLUTION, 100MG/ML (AMALLC) (LEVETIRACETAM ORAL SOL [Suspect]
     Indication: PROPHYLAXIS
     Dosage: 500 MG;BID;
  2. ZYLORIC [Concomitant]
  3. OMEPRAZOLE [Concomitant]
  4. HYDROCORTISONE [Concomitant]
  5. VITAMIN B COMPLEX CAP [Concomitant]
  6. MAGNESIUM HYDROXIDE TAB [Concomitant]
  7. SENNA [Concomitant]

REACTIONS (1)
  - ALANINE AMINOTRANSFERASE INCREASED [None]
